FAERS Safety Report 7090310-4 (Version None)
Quarter: 2010Q4

REPORT INFORMATION
  Report Type: 
  Country: None (occurrence: None)
  Receive Date: 20101104
  Receipt Date: 20101104
  Transmission Date: 20110411
  Serious: Yes (Hospitalization)
  Sender: FDA-Public Use
  Company Number: None

PATIENT
  Sex: Male
  Weight: 58.514 kg

DRUGS (2)
  1. IXABEPILONE: DAY 1,8 AND 15 OF EACH CYCLE [Suspect]
     Indication: SYNOVIAL SARCOMA METASTATIC
     Dosage: 26 MG CYCLE 1 DAY 1: 1/20/10
     Dates: start: 20100120
  2. SUNITINIB MALATE [Suspect]
     Dosage: 37.5 MG
     Dates: start: 20100127

REACTIONS (2)
  - CHEST PAIN [None]
  - MALIGNANT NEOPLASM PROGRESSION [None]
